FAERS Safety Report 12957869 (Version 2)
Quarter: 2016Q4

REPORT INFORMATION
  Report Type: Spontaneous
  Country: US (occurrence: US)
  Receive Date: 20161118
  Receipt Date: 20161129
  Transmission Date: 20170207
  Serious: Yes (Other)
  Sender: FDA-Public Use
  Company Number: US-BAUSCH-BL-2016-027536

PATIENT
  Age: 65 Year
  Sex: Female

DRUGS (5)
  1. XANAX [Concomitant]
     Active Substance: ALPRAZOLAM
     Indication: PRODUCT USED FOR UNKNOWN INDICATION
     Dosage: AS NEEDED
     Route: 048
  2. ALBUTEROL. [Concomitant]
     Active Substance: ALBUTEROL
     Indication: ASTHMA
     Dosage: AS NEEDED
  3. NU-DERM BLENDER [Suspect]
     Active Substance: HYDROQUINONE
     Indication: THERAPEUTIC SKIN CARE TOPICAL
     Dosage: TO FACE
     Route: 061
     Dates: start: 201611, end: 201611
  4. NU-DERM CLEAR [Suspect]
     Active Substance: HYDROQUINONE
     Indication: THERAPEUTIC SKIN CARE TOPICAL
     Dosage: TO FACE
     Route: 061
     Dates: start: 201611, end: 201611
  5. ADVAIR HFA [Concomitant]
     Active Substance: FLUTICASONE PROPIONATE\SALMETEROL XINAFOATE
     Indication: ASTHMA

REACTIONS (4)
  - Chest discomfort [Recovered/Resolved]
  - Mouth swelling [Recovered/Resolved]
  - Swollen tongue [Recovered/Resolved]
  - Asthma [Recovered/Resolved]

NARRATIVE: CASE EVENT DATE: 201611
